FAERS Safety Report 5209658-0 (Version None)
Quarter: 2007Q1

REPORT INFORMATION
  Report Type: 
  Country: None (occurrence: None)
  Receive Date: 20070111
  Receipt Date: 20061228
  Transmission Date: 20070707
  Serious: Yes (Congenital Anomaly)
  Sender: FDA-Public Use
  Company Number: GXKR2006DK08544

PATIENT
  Sex: Female
  Weight: 2.4 kg

DRUGS (3)
  1. OXAZEPAM [Suspect]
     Dosage: 15 MG, BID, TRANSPLACENTAL
     Route: 064
     Dates: start: 20061001, end: 20061206
  2. TAVEGYL                      (CLEMASTINE HYDROGEN FUMARATE) [Suspect]
     Dosage: 1 MG, TRANSPLACENTAL
     Route: 064
  3. ZOLOFT [Concomitant]

REACTIONS (4)
  - CHONDROPATHY [None]
  - CONGENITAL ACROCHORDON [None]
  - CONGENITAL MUSCULOSKELETAL ANOMALY [None]
  - DRUG EXPOSURE DURING PREGNANCY [None]
